FAERS Safety Report 4650814-8 (Version None)
Quarter: 2005Q2

REPORT INFORMATION
  Report Type: 
  Country: None (occurrence: None)
  Receive Date: 20050503
  Receipt Date: 20050422
  Transmission Date: 20051028
  Serious: Yes (Life-Threatening)
  Sender: FDA-Public Use
  Company Number: 2002-0356

PATIENT
  Sex: Male

DRUGS (10)
  1. LITHIUM CARBONATE [Suspect]
     Indication: DRUG USE FOR UNKNOWN INDICATION
     Route: 048
     Dates: start: 20020305, end: 20020305
  2. CLOZAPINE [Suspect]
     Indication: DRUG USE FOR UNKNOWN INDICATION
     Route: 048
     Dates: start: 20020305, end: 20020305
  3. METFORMIN HCL [Concomitant]
     Dosage: 1700MG PER DAY
     Route: 048
     Dates: end: 20020312
  4. ACETYLSALICYLSAURE [Concomitant]
     Indication: CARDIOMYOPATHY
     Route: 048
  5. ALENDRONATE SODIUM [Concomitant]
     Indication: OSTEOPOROSIS
     Route: 048
  6. CALCIUM + VITAMIN D [Concomitant]
     Indication: OSTEOPOROSIS
     Dosage: 500MG PER DAY
     Route: 048
  7. LACTITOL [Concomitant]
     Indication: CONSTIPATION
     Dosage: 20ML PER DAY
     Route: 048
  8. LATANOPROST [Concomitant]
     Indication: GLAUCOMA
     Route: 057
  9. AMIODARONE [Concomitant]
     Indication: DRUG USE FOR UNKNOWN INDICATION
     Route: 048
     Dates: end: 20020305
  10. NITROGLYCERIN [Concomitant]
     Indication: CARDIOMYOPATHY
     Route: 062

REACTIONS (4)
  - DRUG INTERACTION [None]
  - HYPOTHERMIA [None]
  - MIOSIS [None]
  - STUPOR [None]
